FAERS Safety Report 12693952 (Version 2)
Quarter: 2016Q3

REPORT INFORMATION
  Report Type: Spontaneous
  Country: US (occurrence: US)
  Receive Date: 20160829
  Receipt Date: 20160927
  Transmission Date: 20161109
  Serious: Yes (Life-Threatening)
  Sender: FDA-Public Use
  Company Number: PHEH2016US021653

PATIENT
  Sex: Female

DRUGS (1)
  1. RECLAST [Suspect]
     Active Substance: ZOLEDRONIC ACID
     Indication: PRODUCT USED FOR UNKNOWN INDICATION
     Dosage: UNK
     Route: 065
     Dates: start: 20160121

REACTIONS (14)
  - Tooth demineralisation [Unknown]
  - Bone decalcification [Unknown]
  - Fatigue [Unknown]
  - Urinary hesitation [Unknown]
  - Renal disorder [Unknown]
  - Pyrexia [Unknown]
  - Chills [Unknown]
  - Gastrooesophageal reflux disease [Unknown]
  - Alopecia [Unknown]
  - Dysphagia [Unknown]
  - Chest pain [Unknown]
  - Joint stiffness [Unknown]
  - Tooth loss [Unknown]
  - Malaise [Unknown]
